FAERS Safety Report 20662543 (Version 1)
Quarter: 2022Q2

REPORT INFORMATION
  Report Type: Spontaneous
  Country: US (occurrence: US)
  Receive Date: 20220401
  Receipt Date: 20220401
  Transmission Date: 20220721
  Serious: Yes (Hospitalization)
  Sender: FDA-Public Use
  Company Number: US-GILEAD-2022-0575982

PATIENT
  Age: 44 Year
  Sex: Female
  Weight: 63.492 kg

DRUGS (5)
  1. AMBRISENTAN [Suspect]
     Active Substance: AMBRISENTAN
     Indication: Pulmonary arterial hypertension
     Dosage: 10 MG
     Route: 065
     Dates: end: 202203
  2. AMBRISENTAN [Suspect]
     Active Substance: AMBRISENTAN
     Dosage: 5 UNK
     Route: 065
     Dates: start: 202203
  3. TYVASO [Suspect]
     Active Substance: TREPROSTINIL
     Indication: Pulmonary arterial hypertension
     Dosage: 18-72UG, QID
     Route: 055
     Dates: start: 20220314
  4. ELIQUIS [Concomitant]
     Active Substance: APIXABAN
  5. TADALAFIL [Concomitant]
     Active Substance: TADALAFIL

REACTIONS (3)
  - Pulmonary arterial pressure increased [Unknown]
  - Dyspnoea [Unknown]
  - Fatigue [Unknown]
